FAERS Safety Report 6443856-3 (Version None)
Quarter: 2009Q4

REPORT INFORMATION
  Report Type: 
  Country: None (occurrence: None)
  Receive Date: 20091117
  Receipt Date: 20091109
  Transmission Date: 20100525
  Serious: Yes (Hospitalization)
  Sender: FDA-Public Use
  Company Number: US-AMGEN-US370646

PATIENT
  Sex: Female
  Weight: 68.1 kg

DRUGS (21)
  1. NEULASTA [Suspect]
     Indication: CHEMOTHERAPY
     Route: 058
     Dates: start: 20090806
  2. DOXORUBICIN HCL [Suspect]
     Route: 042
     Dates: start: 20090806
  3. CYCLOPHOSPHAMIDE [Suspect]
     Route: 042
     Dates: start: 20090806
  4. VINCRISTINE [Concomitant]
     Route: 042
     Dates: start: 20090806
  5. RITUXAN [Concomitant]
     Route: 042
     Dates: start: 20090806
  6. PREDNISONE [Concomitant]
     Route: 048
     Dates: start: 20090806
  7. ALBUTEROL [Concomitant]
     Route: 055
     Dates: start: 20080805
  8. CITALOPRAM HYDROBROMIDE [Concomitant]
     Route: 048
     Dates: start: 20090302
  9. COLACE [Concomitant]
     Route: 048
  10. COMPAZINE [Concomitant]
     Route: 048
  11. FLUTICASONE [Concomitant]
     Route: 055
  12. LORAZEPAM [Concomitant]
     Route: 048
     Dates: start: 20090302
  13. PRILOSEC [Concomitant]
     Route: 048
  14. ALLOPURINOL [Concomitant]
     Route: 048
  15. TYLENOL W/ CODEINE [Concomitant]
     Route: 048
  16. ADVAIR DISKUS 100/50 [Concomitant]
     Route: 055
     Dates: start: 20090717
  17. ALLEGRA [Concomitant]
     Route: 065
     Dates: start: 20090714
  18. AVELOX [Concomitant]
     Route: 065
     Dates: start: 20090702
  19. FLONASE [Concomitant]
     Route: 065
     Dates: start: 20090702
  20. MEDROL [Concomitant]
     Route: 065
     Dates: start: 20090708
  21. ZANTAC [Concomitant]
     Route: 048

REACTIONS (3)
  - DYSPNOEA [None]
  - FEBRILE NEUTROPENIA [None]
  - PLEURAL EFFUSION [None]
